FAERS Safety Report 13688031 (Version 1)
Quarter: 2017Q2

REPORT INFORMATION
  Report Type: Spontaneous
  Country: US (occurrence: US)
  Receive Date: 20170626
  Receipt Date: 20170626
  Transmission Date: 20170830
  Serious: No
  Sender: FDA-Public Use
  Company Number: US-ACCORD-043216

PATIENT
  Age: 70 Year
  Sex: Female
  Weight: 81.65 kg

DRUGS (1)
  1. CLONAZEPAM ACCORD [Suspect]
     Active Substance: CLONAZEPAM
     Indication: FIBROMYALGIA
     Dosage: STRENGTH: 0.5 MG,?FREQUENCY: QHS
     Route: 048

REACTIONS (4)
  - Sleep disorder [Unknown]
  - Product substitution issue [Unknown]
  - Off label use [Unknown]
  - Drug ineffective [Unknown]
